FAERS Safety Report 6851422-0 (Version None)
Quarter: 2010Q3

REPORT INFORMATION
  Report Type: 
  Country: None (occurrence: None)
  Receive Date: 20100717
  Receipt Date: 20080117
  Transmission Date: 20110219
  Serious: No
  Sender: FDA-Public Use
  Company Number: US-PFIZER INC-2008007423

PATIENT
  Sex: Female
  Weight: 90.7 kg

DRUGS (5)
  1. CHANTIX [Suspect]
     Indication: SMOKING CESSATION THERAPY
     Route: 048
     Dates: start: 20070101
  2. MORPHINE [Concomitant]
  3. PERCOCET [Concomitant]
  4. ANTIINFLAMMATORY/ANTIRHEUMATIC PRODUCTS [Concomitant]
  5. ALL OTHER THERAPEUTIC PRODUCTS [Concomitant]
     Indication: FIBROMYALGIA

REACTIONS (2)
  - NAUSEA [None]
  - RETCHING [None]
